FAERS Safety Report 7287979-8 (Version None)
Quarter: 2011Q1

REPORT INFORMATION
  Report Type: 
  Country: None (occurrence: None)
  Receive Date: 20110208
  Receipt Date: 20110208
  Transmission Date: 20110831
  Serious: Yes (Hospitalization)
  Sender: FDA-Public Use
  Company Number: None

PATIENT
  Sex: Female
  Weight: 102.0593 kg

DRUGS (9)
  1. LORAZEPAM [Concomitant]
  2. ACV [Concomitant]
  3. OXYCONTIN [Concomitant]
  4. ATARAX [Concomitant]
  5. NORCO [Concomitant]
  6. FENTANYL [Concomitant]
  7. LENALIDOMIDE [Suspect]
     Indication: HODGKIN'S DISEASE
     Dosage: 25MG QDAY PO
     Route: 048
     Dates: start: 20101029
  8. OXYCODONE [Concomitant]
  9. AMBIEN [Concomitant]

REACTIONS (2)
  - CONDITION AGGRAVATED [None]
  - PAIN [None]
